FAERS Safety Report 14695661 (Version 1)
Quarter: 2018Q1

REPORT INFORMATION
  Report Type: Spontaneous
  Country: US (occurrence: US)
  Receive Date: 20180329
  Receipt Date: 20180329
  Transmission Date: 20180509
  Serious: Yes (Life-Threatening)
  Sender: FDA-Public Use
  Company Number: US-TEVA-2018-US-874855

PATIENT
  Age: 73 Year
  Sex: Female

DRUGS (3)
  1. CHLORTALIDONE [Suspect]
     Active Substance: CHLORTHALIDONE
     Route: 065
  2. POLYETHYLENE GLYCOL [Suspect]
     Active Substance: POLYETHYLENE GLYCOLS
     Indication: BOWEL PREPARATION
     Dosage: CONSUMED 4 LITERS OF POLYETHYLENE GLYCOL SOLUTION IN PREPARATION FOR COLONOSCOPY
     Route: 048
  3. LISINOPRIL. [Suspect]
     Active Substance: LISINOPRIL
     Route: 065

REACTIONS (3)
  - Hyponatraemia [Unknown]
  - Hyponatraemic seizure [Unknown]
  - Inappropriate antidiuretic hormone secretion [Unknown]
